FAERS Safety Report 6641989-X (Version None)
Quarter: 2010Q1

REPORT INFORMATION
  Report Type: 
  Country: None (occurrence: None)
  Receive Date: 20100316
  Receipt Date: 20100301
  Transmission Date: 20100710
  Serious: Yes (Hospitalization)
  Sender: FDA-Public Use
  Company Number: 2010000521

PATIENT
  Age: 68 Year
  Sex: Female

DRUGS (5)
  1. ERLOTINIB HYDROCHLORIDE [Suspect]
     Indication: BREAST CANCER METASTATIC
     Dosage: 150 MG, QD, ORAL
     Route: 048
     Dates: start: 20090925
  2. BEVACIZUMAB [Concomitant]
  3. PACLITAXEL [Concomitant]
  4. MOTRIN [Concomitant]
  5. HEPARIN [Concomitant]

REACTIONS (8)
  - ANXIETY [None]
  - BLOOD PRESSURE SYSTOLIC INCREASED [None]
  - CARDIAC MURMUR [None]
  - CELLULITIS STAPHYLOCOCCAL [None]
  - DIARRHOEA [None]
  - INSOMNIA [None]
  - NASAL ABSCESS [None]
  - STAPHYLOCOCCAL ABSCESS [None]
